FAERS Safety Report 7243944-8 (Version None)
Quarter: 2011Q1

REPORT INFORMATION
  Report Type: 
  Country: None (occurrence: None)
  Receive Date: 20110125
  Receipt Date: 20110118
  Transmission Date: 20110831
  Serious: Yes (Death)
  Sender: FDA-Public Use
  Company Number: B0695800A

PATIENT
  Sex: Male

DRUGS (1)
  1. RELENZA [Suspect]
     Route: 042
     Dates: start: 20110115

REACTIONS (1)
  - DEATH [None]
